FAERS Safety Report 21473892 (Version 1)
Quarter: 2022Q4

REPORT INFORMATION
  Report Type: Spontaneous
  Country: FR (occurrence: FR)
  Receive Date: 20221018
  Receipt Date: 20221018
  Transmission Date: 20230113
  Serious: Yes (Other)
  Sender: FDA-Public Use
  Company Number: None

PATIENT
  Age: 87 Year
  Sex: Male
  Weight: 52 kg

DRUGS (1)
  1. FUROSEMIDE [Suspect]
     Active Substance: FUROSEMIDE
     Indication: Cardiorenal syndrome
     Dosage: 125 MG, 1 TOTAL, IN 5 HOURS INSTEAD OF 24 HOURS
     Route: 065
     Dates: start: 20220602, end: 20220602

REACTIONS (3)
  - Renal failure [Recovered/Resolved]
  - Product administration error [Recovered/Resolved]
  - Wrong rate [Recovered/Resolved]

NARRATIVE: CASE EVENT DATE: 20220602
